FAERS Safety Report 7201170-2 (Version None)
Quarter: 2010Q4

REPORT INFORMATION
  Report Type: 
  Country: None (occurrence: None)
  Receive Date: 20101229
  Receipt Date: 20101215
  Transmission Date: 20110411
  Serious: Yes (Hospitalization)
  Sender: FDA-Public Use
  Company Number: US-CELGENEUS-163-21880-08090697

PATIENT
  Age: 73 Year
  Sex: Male
  Weight: 74.5 kg

DRUGS (6)
  1. REVLIMID [Suspect]
     Route: 048
     Dates: start: 20080811, end: 20080905
  2. POSACONAZOLE [Concomitant]
     Indication: INFECTION PROPHYLAXIS
     Route: 065
  3. CIPRO [Concomitant]
     Indication: INFECTION PROPHYLAXIS
     Route: 065
  4. CEFEPIME [Concomitant]
     Route: 065
  5. LEVOFLOXACIN [Concomitant]
     Route: 065
  6. TOBRAMYCIN [Concomitant]
     Route: 065

REACTIONS (5)
  - HAEMOGLOBIN DECREASED [None]
  - LIP ULCERATION [None]
  - NEUTROPHIL COUNT DECREASED [None]
  - OESOPHAGEAL INFECTION [None]
  - PLATELET COUNT DECREASED [None]
